FAERS Safety Report 5563754-7 (Version None)
Quarter: 2007Q4

REPORT INFORMATION
  Report Type: 
  Country: None (occurrence: None)
  Receive Date: 20071217
  Receipt Date: 20071210
  Transmission Date: 20080405
  Serious: Yes (Hospitalization)
  Sender: FDA-Public Use
  Company Number: CA-ASTRAZENECA-2007UW28081

PATIENT
  Age: 77 Year
  Sex: Male

DRUGS (8)
  1. ATACAND HCT [Suspect]
     Indication: HYPERTENSION
     Route: 048
     Dates: start: 20070101
  2. ATACAND [Concomitant]
     Indication: HYPERTENSION
  3. ADVAIR DISKUS 100/50 [Concomitant]
     Indication: ASTHMA
  4. GLUCOPHAGE [Concomitant]
     Indication: DIABETES MELLITUS
  5. INSULIN [Concomitant]
     Indication: DIABETES MELLITUS
  6. DILTIAZEM [Concomitant]
  7. RETARD [Concomitant]
  8. SIMVASTATIN [Concomitant]

REACTIONS (4)
  - ANGINA PECTORIS [None]
  - BLOOD PRESSURE INCREASED [None]
  - DRUG INEFFECTIVE [None]
  - LOSS OF CONSCIOUSNESS [None]
